FAERS Safety Report 5330982-5 (Version None)
Quarter: 2007Q2

REPORT INFORMATION
  Report Type: 
  Country: None (occurrence: None)
  Receive Date: 20070522
  Receipt Date: 20070515
  Transmission Date: 20071010
  Serious: Yes (Other)
  Sender: FDA-Public Use
  Company Number: PH-ASTRAZENECA-2007AP01946

PATIENT
  Age: 5331 Day
  Sex: Female
  Weight: 43 kg

DRUGS (11)
  1. SEROQUEL [Suspect]
     Indication: BIPOLAR DISORDER
     Route: 048
     Dates: start: 20070117, end: 20070123
  2. SEROQUEL [Suspect]
     Route: 048
     Dates: start: 20070124, end: 20070130
  3. SEROQUEL [Suspect]
     Route: 048
     Dates: start: 20070131, end: 20070206
  4. SEROQUEL [Suspect]
     Route: 048
     Dates: start: 20070207
  5. HALOPERIDOL [Concomitant]
     Indication: HALLUCINATION
     Route: 030
     Dates: start: 20070103, end: 20070109
  6. CLONAZEPAM [Concomitant]
     Indication: AGITATION
     Route: 048
     Dates: start: 20070103
  7. BENADRYL [Concomitant]
     Indication: INSOMNIA
     Route: 048
     Dates: start: 20070103
  8. BENADRYL [Concomitant]
     Indication: HALLUCINATION
     Route: 048
     Dates: start: 20070103
  9. BENADRYL [Concomitant]
     Route: 030
     Dates: start: 20070103, end: 20070109
  10. BENADRYL [Concomitant]
     Route: 030
     Dates: start: 20070103, end: 20070109
  11. BIPERIDAN [Concomitant]
     Route: 030
     Dates: start: 20070105, end: 20070105

REACTIONS (1)
  - PULMONARY HYPERTENSION [None]
